FAERS Safety Report 14833332 (Version 2)
Quarter: 2018Q2

REPORT INFORMATION
  Report Type: Report from Study
  Country: US (occurrence: US)
  Receive Date: 20180501
  Receipt Date: 20180508
  Transmission Date: 20180711
  Serious: Yes (Other)
  Sender: FDA-Public Use
  Company Number: US-BAYER-2018-068818

PATIENT
  Age: 88 Year
  Sex: Male

DRUGS (1)
  1. NEXAVAR [Suspect]
     Active Substance: SORAFENIB
     Indication: HEPATOCELLULAR CARCINOMA
     Dosage: 200 MG, BID
     Route: 048
     Dates: start: 20180328, end: 20180420

REACTIONS (14)
  - Depressed level of consciousness [Recovering/Resolving]
  - Pain in extremity [Recovering/Resolving]
  - Lethargy [Recovering/Resolving]
  - Fear [None]
  - Fatigue [None]
  - Dependence on oxygen therapy [Recovering/Resolving]
  - Constipation [None]
  - Musculoskeletal stiffness [Recovering/Resolving]
  - Hypersomnia [None]
  - Speech disorder [Recovering/Resolving]
  - Asthenia [None]
  - Off label use [None]
  - Decreased appetite [Recovering/Resolving]
  - Hallucination [None]

NARRATIVE: CASE EVENT DATE: 2018
